FAERS Safety Report 20607803 (Version 1)
Quarter: 2022Q1

REPORT INFORMATION
  Report Type: Spontaneous
  Country: US (occurrence: None)
  Receive Date: 20220317
  Receipt Date: 20220317
  Transmission Date: 20220423
  Serious: No
  Sender: FDA-Public Use
  Company Number: None

PATIENT
  Age: 44 Year
  Sex: Female
  Weight: 55.34 kg

DRUGS (2)
  1. GAMUNEX-C [Suspect]
     Active Substance: HUMAN IMMUNOGLOBULIN G
  2. MAPAP 500mg Oral [Concomitant]

REACTIONS (8)
  - Urticaria [None]
  - Infusion related reaction [None]
  - Influenza like illness [None]
  - Headache [None]
  - Musculoskeletal stiffness [None]
  - Pruritus [None]
  - Throat irritation [None]
  - Eyelids pruritus [None]

NARRATIVE: CASE EVENT DATE: 20220228
